FAERS Safety Report 5605785-4 (Version None)
Quarter: 2008Q1

REPORT INFORMATION
  Report Type: 
  Country: None (occurrence: None)
  Receive Date: 20080129
  Receipt Date: 20080122
  Transmission Date: 20080703
  Serious: Yes (Hospitalization)
  Sender: FDA-Public Use
  Company Number: US-ROCHE-504336

PATIENT
  Sex: Female

DRUGS (1)
  1. BONIVA [Suspect]
     Indication: DRUG USE FOR UNKNOWN INDICATION
     Dosage: FORM REPORTED AS: PILL
     Route: 065
     Dates: start: 20070323, end: 20070423

REACTIONS (5)
  - ARRHYTHMIA [None]
  - ORAL INTAKE REDUCED [None]
  - STOMACH DISCOMFORT [None]
  - TREMOR [None]
  - WEIGHT DECREASED [None]
